FAERS Safety Report 9625550 (Version 5)
Quarter: 2013Q4

REPORT INFORMATION
  Report Type: Spontaneous
  Country: GB (occurrence: GB)
  Receive Date: 20131016
  Receipt Date: 20131217
  Transmission Date: 20140711
  Serious: Yes (Hospitalization, Disabling)
  Sender: FDA-Public Use
  Company Number: PHFR2013GB005701

PATIENT
  Age: 69 Year
  Sex: Male

DRUGS (8)
  1. CLOZARIL [Suspect]
     Indication: SCHIZOPHRENIA
     Dosage: UNK
     Route: 048
     Dates: start: 20130802
  2. CLOZARIL [Suspect]
     Indication: PSYCHOTIC DISORDER
  3. OMEPRAZOLE [Concomitant]
     Indication: GASTRITIS
     Dosage: 10 MG, UNK
     Route: 048
  4. SINEMET [Concomitant]
     Indication: PARKINSON^S DISEASE
     Dosage: 2 MG, UNK
     Route: 048
  5. LITHIUM CARBONATE [Concomitant]
     Indication: DEPRESSION
     Dosage: 400 MG, UNK
     Route: 048
     Dates: start: 20130722
  6. MIRTAZAPINE [Concomitant]
     Indication: DEPRESSION
     Dosage: 30 MG, UNK
     Route: 048
     Dates: start: 20130613
  7. VENLAFAXINE [Concomitant]
     Indication: DEPRESSION
     Dosage: 150 MG, UNK
     Route: 048
     Dates: start: 20130822
  8. DIZEPAM [Concomitant]
     Indication: AGITATION
     Dosage: 2 MG, UNK
     Route: 048

REACTIONS (4)
  - Embolic stroke [Recovering/Resolving]
  - Cerebrovascular accident [Recovering/Resolving]
  - Hyperhidrosis [Recovered/Resolved]
  - Vomiting [Recovered/Resolved]
